FAERS Safety Report 5233925-8 (Version None)
Quarter: 2007Q1

REPORT INFORMATION
  Report Type: 
  Country: None (occurrence: None)
  Receive Date: 20061204
  Receipt Date: 20060802
  Transmission Date: 20070707
  Serious: No
  Sender: FDA-Public Use
  Company Number: 2006-BP-07559BP

PATIENT
  Age: 63 Year
  Sex: Female

DRUGS (8)
  1. SPIRIVA [Suspect]
     Indication: ASTHMA
     Dosage: 18 MCG (18 MCG,1 CAP QD),IH
     Route: 055
     Dates: start: 20050101, end: 20060705
  2. ALBUTEROL SULFATE INHALATION SOLUTION, 0.083%(SALBUTAMOL) (SALBUTAMOL [Concomitant]
  3. OXYGEN (OXYGEN) [Concomitant]
  4. PERCOCET (ALL OTHER THERAPEUTIC PRODUCTS) [Concomitant]
  5. DARVOCET [Concomitant]
  6. ACTONEL [Concomitant]
  7. PREVACID [Concomitant]
  8. OS-CAL (OS-CAL /00188401/) [Concomitant]

REACTIONS (4)
  - MYALGIA [None]
  - NEUROPATHY [None]
  - PERIARTHRITIS [None]
  - SPUTUM DISCOLOURED [None]
